FAERS Safety Report 4721338-4 (Version None)
Quarter: 2005Q3

REPORT INFORMATION
  Report Type: 
  Country: None (occurrence: None)
  Receive Date: 20050721
  Receipt Date: 20040701
  Transmission Date: 20060218
  Serious: No
  Sender: FDA-Public Use
  Company Number: US-BRISTOL-MYERS SQUIBB COMPANY-12630042

PATIENT
  Age: 76 Year
  Sex: Female
  Weight: 54 kg

DRUGS (3)
  1. COUMADIN [Suspect]
     Indication: CEREBROVASCULAR ACCIDENT PROPHYLAXIS
     Dosage: 2.5MG, 1 TABLET DAILY FOR 2 YEARS
     Route: 048
  2. COUMADIN [Suspect]
     Indication: HEART RATE IRREGULAR
     Dosage: 2.5MG, 1 TABLET DAILY FOR 2 YEARS
     Route: 048
  3. OTHERS (NOS) [Concomitant]

REACTIONS (1)
  - SKIN DISCOLOURATION [None]
